FAERS Safety Report 26000860 (Version 1)
Quarter: 2025Q4

REPORT INFORMATION
  Report Type: Spontaneous
  Country: US (occurrence: US)
  Receive Date: 20251105
  Receipt Date: 20251105
  Transmission Date: 20260118
  Serious: No
  Sender: ANI
  Company Number: US-ANIPHARMA-2025-US-043708

PATIENT
  Age: 70 Year
  Sex: Female
  Weight: 48.99 kg

DRUGS (17)
  1. VALACYCLOVIR [Concomitant]
     Active Substance: VALACYCLOVIR HYDROCHLORIDE
  2. HYDROCODONE [Concomitant]
     Active Substance: HYDROCODONE
  3. CELEBREX [Concomitant]
     Active Substance: CELECOXIB
  4. PROZAC [Concomitant]
     Active Substance: FLUOXETINE HYDROCHLORIDE
  5. OMEGA 3 [Concomitant]
     Active Substance: CAPSAICIN
  6. FENOFIBRATE [Concomitant]
     Active Substance: FENOFIBRATE
  7. ZETIA [Concomitant]
     Active Substance: EZETIMIBE
  8. VITAMIN D3 [Concomitant]
     Active Substance: CHOLECALCIFEROL
  9. DICLOFENAC SODIUM [Concomitant]
     Active Substance: DICLOFENAC SODIUM
  10. ALPRAZOLAM [Concomitant]
     Active Substance: ALPRAZOLAM
  11. ENBREL [Concomitant]
     Active Substance: ETANERCEPT
  12. PREDNISONE [Concomitant]
     Active Substance: PREDNISONE
  13. LOSARTAN [Concomitant]
     Active Substance: LOSARTAN
  14. AMLODIPINE [Concomitant]
     Active Substance: AMLODIPINE BESYLATE
  15. HYDROXYCHLOROQUINE [Concomitant]
     Active Substance: HYDROXYCHLOROQUINE
  16. AMBIEN [Concomitant]
     Active Substance: ZOLPIDEM TARTRATE
  17. CORTICOTROPIN [Suspect]
     Active Substance: CORTICOTROPIN
     Indication: Rheumatoid arthritis
     Dosage: 40 UNITS TWICE A WEEK
     Dates: start: 20250811

REACTIONS (5)
  - Haemorrhage [Recovered/Resolved]
  - Injury associated with device [Recovered/Resolved]
  - Incorrect dosage administered [Recovered/Resolved]
  - Pain [Recovered/Resolved]
  - Contraindicated product administered [Not Recovered/Not Resolved]

NARRATIVE: CASE EVENT DATE: 20250915
